FAERS Safety Report 21311169 (Version 1)
Quarter: 2022Q3

REPORT INFORMATION
  Report Type: Spontaneous
  Country: US (occurrence: None)
  Receive Date: 20220909
  Receipt Date: 20220909
  Transmission Date: 20221026
  Serious: No
  Sender: FDA-Public Use
  Company Number: US-FARMAPROD-202201-0148

PATIENT
  Age: 62 Year
  Sex: Male

DRUGS (11)
  1. OXERVATE [Suspect]
     Active Substance: CENEGERMIN-BKBJ
     Indication: Neurotrophic keratopathy
     Route: 047
     Dates: start: 20220114, end: 20220117
  2. OXERVATE [Suspect]
     Active Substance: CENEGERMIN-BKBJ
     Route: 047
     Dates: start: 20220126, end: 20220127
  3. GENTEAL TEARS [Concomitant]
     Active Substance: DEXTRAN 70\HYPROMELLOSE 2910 (4000 MPA.S)
     Dosage: 0.1%-0.3%
  4. VITAMIN D2 [Concomitant]
     Active Substance: ERGOCALCIFEROL
  5. ZINC-220 [Concomitant]
     Dosage: 50(220) MG
  6. LEVOTHYROXINE [Concomitant]
     Active Substance: LEVOTHYROXINE
  7. ELIQUIS [Concomitant]
     Active Substance: APIXABAN
  8. VITAMINS [Concomitant]
     Active Substance: VITAMINS
  9. VITAMIN C [Concomitant]
     Active Substance: ASCORBIC ACID
  10. PROLENSA [Concomitant]
     Active Substance: BROMFENAC SODIUM
  11. PREDNISOLONE [Concomitant]
     Active Substance: PREDNISOLONE
     Dosage: RIGHT EYE.
     Dates: start: 20211216

REACTIONS (5)
  - Eye pain [Recovering/Resolving]
  - Eye swelling [Recovered/Resolved]
  - Vision blurred [Unknown]
  - Visual impairment [Recovered/Resolved]
  - Lacrimation increased [Recovered/Resolved]

NARRATIVE: CASE EVENT DATE: 20220114
